FAERS Safety Report 17410490 (Version 1)
Quarter: 2020Q1

REPORT INFORMATION
  Report Type: Spontaneous
  Country: IN (occurrence: IN)
  Receive Date: 20200212
  Receipt Date: 20200212
  Transmission Date: 20200409
  Serious: Yes (Other)
  Sender: FDA-Public Use
  Company Number: IN-MYLANLABS-2020M1015981

PATIENT
  Age: 14 Year
  Sex: Male

DRUGS (2)
  1. LIDOCAINE-EPINEPHRINE [Suspect]
     Active Substance: EPINEPHRINE\LIDOCAINE
     Indication: NERVE BLOCK
     Dosage: 10 ML 2% LIDOCAINE/EPINEPHRINE (1:200000) ADMINISTERED BRACHIAL PLEXUS LATERAL-TO-MEDIAL DIRECTION
     Route: 050
  2. BUPIVACAINE. [Suspect]
     Active Substance: BUPIVACAINE
     Indication: NERVE BLOCK
     Dosage: 10 ML ADMINISTERED NEEDLE IN BRACHIAL PLEXUS IN A LATERAL-TO-MEDIAL DIRECTION
     Route: 050

REACTIONS (1)
  - Dysphonia [Recovered/Resolved]
